FAERS Safety Report 10078889 (Version 6)
Quarter: 2014Q4

REPORT INFORMATION
  Report Type: Spontaneous
  Country: JP (occurrence: None)
  Receive Date: 20140411
  Receipt Date: 20141028
  Transmission Date: 20150528
  Serious: Yes (Hospitalization, Congenital Anomaly, Other)
  Sender: FDA-Public Use
  Company Number: JP-015141

PATIENT
  Age: 24 Month
  Sex: Female
  Weight: .4 kg

DRUGS (9)
  1. UTERON [Concomitant]
     Active Substance: RITODRINE HYDROCHLORIDE
  2. DESMOPRESSIN [Suspect]
     Active Substance: DESMOPRESSIN
     Indication: DIABETES INSIPIDUS
     Route: 064
     Dates: start: 20110408
  3. FLOMOX [Concomitant]
     Active Substance: CEFCAPENE PIVOXIL HYDROCHLORIDE HYDRATE
  4. BIOFERMIN /01617201/ [Concomitant]
     Active Substance: BACILLUS SUBTILIS\LACTOBACILLUS ACIDOPHILUS\STREPTOCOCCUS FAECAIS
  5. APRESOLINE HYDROCHLORIDE [Concomitant]
     Active Substance: HYDRALAZINE HYDROCHLORIDE
  6. ALDOMET /00000103/ [Concomitant]
  7. HUMALOG [Concomitant]
     Active Substance: INSULIN LISPRO
  8. FLAGYL [Concomitant]
     Active Substance: METRONIDAZOLE\METRONIDAZOLE HYDROCHLORIDE
  9. ADALAT [Concomitant]
     Active Substance: NIFEDIPINE

REACTIONS (13)
  - Maternal drugs affecting foetus [None]
  - Foetal growth restriction [None]
  - Circulatory collapse [None]
  - Caesarean section [None]
  - Bronchopulmonary dysplasia [None]
  - Retinopathy of prematurity [None]
  - Premature delivery [None]
  - Oligohydramnios [None]
  - Low birth weight baby [None]
  - Foetal exposure during pregnancy [None]
  - Neonatal tachypnoea [None]
  - Premature baby [None]
  - Transient tachypnoea of the newborn [None]
